FAERS Safety Report 11723405 (Version 3)
Quarter: 2015Q4

REPORT INFORMATION
  Report Type: Report from Study
  Country: IT (occurrence: IT)
  Receive Date: 20151111
  Receipt Date: 20151221
  Transmission Date: 20160304
  Serious: Yes (Other)
  Sender: FDA-Public Use
  Company Number: PHHY2014IT183984

PATIENT
  Sex: Female

DRUGS (2)
  1. CARDIOASPIRIN [Concomitant]
     Active Substance: ASPIRIN
     Indication: FACTOR V LEIDEN MUTATION
     Dosage: UNK, DURING 4TH PREGNANCY
     Route: 065
  2. TEGRETOL [Suspect]
     Active Substance: CARBAMAZEPINE
     Indication: EPILEPSY
     Dosage: 400 MG, QD
     Route: 065
     Dates: start: 1998

REACTIONS (2)
  - Abortion spontaneous [Unknown]
  - Maternal exposure during pregnancy [Unknown]

NARRATIVE: CASE EVENT DATE: 20131110
